FAERS Safety Report 4781067-8 (Version None)
Quarter: 2005Q3

REPORT INFORMATION
  Report Type: 
  Country: None (occurrence: None)
  Receive Date: 20050927
  Receipt Date: 20050909
  Transmission Date: 20060218
  Serious: Yes (Life-Threatening, Hospitalization)
  Sender: FDA-Public Use
  Company Number: 430013M05FRA

PATIENT
  Age: 58 Year
  Sex: Male

DRUGS (12)
  1. NOVANTRONE [Suspect]
     Indication: MULTIPLE SCLEROSIS
     Dosage: SEE IMAGE
     Route: 042
     Dates: start: 20010301, end: 20010301
  2. NOVANTRONE [Suspect]
     Indication: MULTIPLE SCLEROSIS
     Dosage: SEE IMAGE
     Route: 042
     Dates: start: 20010401, end: 20010501
  3. NOVANTRONE [Suspect]
     Indication: MULTIPLE SCLEROSIS
     Dosage: SEE IMAGE
     Route: 042
     Dates: start: 20010501, end: 20010501
  4. NOVANTRONE [Suspect]
     Indication: MULTIPLE SCLEROSIS
     Dosage: SEE IMAGE
     Route: 042
     Dates: start: 20010601, end: 20010601
  5. NOVANTRONE [Suspect]
     Indication: MULTIPLE SCLEROSIS
     Dosage: SEE IMAGE
     Route: 042
     Dates: start: 20010701, end: 20010701
  6. NOVANTRONE [Suspect]
     Indication: MULTIPLE SCLEROSIS
     Dosage: SEE IMAGE
     Route: 042
     Dates: start: 20010810, end: 20010810
  7. MANTADIX (AMANTADINE HYDROCHLORIDE) [Concomitant]
  8. VASTEN (PRAVASTTIN SODIUM) [Concomitant]
  9. SOLU-MEDROL [Concomitant]
  10. VASOBRAL                  (VASOBRAL) [Concomitant]
  11. ACTONEL (RISDEDRONATE) [Concomitant]
  12. CALCIUM (CALCIUM-SANDOZ /00009901/) [Concomitant]

REACTIONS (6)
  - ACUTE PULMONARY OEDEMA [None]
  - CARDIAC FAILURE [None]
  - CARDIAC FAILURE CONGESTIVE [None]
  - CARDIOMEGALY [None]
  - LIVER DISORDER [None]
  - OEDEMA PERIPHERAL [None]
